FAERS Safety Report 20623334 (Version 1)
Quarter: 2022Q1

REPORT INFORMATION
  Report Type: Spontaneous
  Country: SG (occurrence: SG)
  Receive Date: 20220322
  Receipt Date: 20220322
  Transmission Date: 20220423
  Serious: Yes (Hospitalization, Other)
  Sender: FDA-Public Use
  Company Number: SG-BoehringerIngelheim-2022-BI-160657

PATIENT
  Age: 54 Year
  Sex: Female

DRUGS (1)
  1. EMPAGLIFLOZIN [Suspect]
     Active Substance: EMPAGLIFLOZIN
     Indication: Product used for unknown indication

REACTIONS (1)
  - Diabetic ketoacidosis [Unknown]

NARRATIVE: CASE EVENT DATE: 20220226
